FAERS Safety Report 5195614-8 (Version None)
Quarter: 2006Q4

REPORT INFORMATION
  Report Type: 
  Country: None (occurrence: None)
  Receive Date: 20061226
  Receipt Date: 20061226
  Transmission Date: 20070319
  Serious: No
  Sender: FDA-Public Use
  Company Number: None

PATIENT
  Age: 76 Year
  Sex: Male
  Weight: 87.771 kg

DRUGS (1)
  1. ROSUVASTATIN 40 MG [Suspect]
     Indication: HYPERLIPIDAEMIA
     Dosage: 40 MG 1/2 TABLET QHS PO
     Route: 048
     Dates: start: 20060822, end: 20061120

REACTIONS (1)
  - MYALGIA [None]
